FAERS Safety Report 5856150-6 (Version None)
Quarter: 2008Q3

REPORT INFORMATION
  Report Type: 
  Country: None (occurrence: None)
  Receive Date: 20080825
  Receipt Date: 20080815
  Transmission Date: 20090109
  Serious: Yes (Hospitalization)
  Sender: FDA-Public Use
  Company Number: US-ABBOTT-08P-163-0471122-00

PATIENT
  Sex: Female
  Weight: 102.15 kg

DRUGS (5)
  1. HUMIRA [Suspect]
     Indication: PSORIASIS
     Route: 058
     Dates: start: 20080627
  2. HUMIRA [Suspect]
     Dates: start: 20080620
  3. MELOXICAM [Concomitant]
     Indication: ANTIINFLAMMATORY THERAPY
     Route: 048
     Dates: start: 20080501
  4. ALLOPURINOL [Concomitant]
     Indication: DEPRESSION
     Route: 048
     Dates: start: 20080501
  5. ALPRAZOLAM [Concomitant]
     Indication: ANXIETY
     Route: 048
     Dates: start: 20080501

REACTIONS (3)
  - DRY SKIN [None]
  - PAIN OF SKIN [None]
  - SKIN EXFOLIATION [None]
